FAERS Safety Report 20090572 (Version 1)
Quarter: 2021Q4

REPORT INFORMATION
  Report Type: Spontaneous
  Country: US (occurrence: None)
  Receive Date: 20211118
  Receipt Date: 20211118
  Transmission Date: 20220303
  Serious: Yes (Death)
  Sender: FDA-Public Use
  Company Number: None

PATIENT
  Age: 44 Year
  Sex: Female

DRUGS (7)
  1. POMALYST [Suspect]
     Active Substance: POMALIDOMIDE
     Indication: Peripheral arterial occlusive disease
     Route: 048
     Dates: start: 20150730, end: 201611
  2. POMALYST [Suspect]
     Active Substance: POMALIDOMIDE
     Indication: Plasma cell myeloma
  3. DEXAMETHASONE [Concomitant]
     Active Substance: DEXAMETHASONE
  4. OXYCONTIN [Concomitant]
     Active Substance: OXYCODONE HYDROCHLORIDE
  5. OXYCODONE [Concomitant]
     Active Substance: OXYCODONE
  6. OMEPRAZOLE [Concomitant]
     Active Substance: OMEPRAZOLE
  7. ONDANSETRON HCL [Concomitant]
     Active Substance: ONDANSETRON HYDROCHLORIDE

REACTIONS (10)
  - Disease progression [None]
  - Pancytopenia [None]
  - Acute kidney injury [None]
  - Tumour lysis syndrome [None]
  - Epistaxis [None]
  - Arthritis bacterial [None]
  - Pyrexia [None]
  - Tachycardia [None]
  - Tachypnoea [None]
  - General physical health deterioration [None]

NARRATIVE: CASE EVENT DATE: 20170107
